FAERS Safety Report 8024471-7 (Version None)
Quarter: 2012Q1

REPORT INFORMATION
  Report Type: 
  Country: None (occurrence: None)
  Receive Date: 20120105
  Receipt Date: 20111231
  Transmission Date: 20120608
  Serious: Yes (Hospitalization)
  Sender: FDA-Public Use
  Company Number: US-AMGEN-USASP2011054828

PATIENT
  Sex: Female

DRUGS (2)
  1. ENBREL [Suspect]
     Indication: PUSTULAR PSORIASIS
  2. ENBREL [Suspect]
     Indication: PSORIATIC ARTHROPATHY
     Dosage: 50 UNK, QWK
     Route: 058
     Dates: start: 20110712, end: 20111128

REACTIONS (6)
  - NAUSEA [None]
  - INFLUENZA [None]
  - DEHYDRATION [None]
  - PUSTULAR PSORIASIS [None]
  - PSORIATIC ARTHROPATHY [None]
  - VOMITING [None]
